FAERS Safety Report 5011580-X (Version None)
Quarter: 2006Q2

REPORT INFORMATION
  Report Type: 
  Country: None (occurrence: None)
  Receive Date: 20060524
  Receipt Date: 20060509
  Transmission Date: 20061013
  Serious: Yes (Hospitalization)
  Sender: FDA-Public Use
  Company Number: 232646K06USA

PATIENT
  Age: 28 Year
  Sex: Male

DRUGS (2)
  1. REBIF [Suspect]
     Indication: MULTIPLE SCLEROSIS
     Dosage: 22 MCG, 3 IN 1 WEEKS, SUBCUTANEOUS
     Route: 058
     Dates: start: 20060407, end: 20060501
  2. VICODIN [Concomitant]

REACTIONS (4)
  - DIFFICULTY IN WALKING [None]
  - MUSCLE SPASTICITY [None]
  - MUSCULOSKELETAL STIFFNESS [None]
  - PAIN [None]
